FAERS Safety Report 4292727-X (Version None)
Quarter: 2004Q1

REPORT INFORMATION
  Report Type: 
  Country: None (occurrence: None)
  Receive Date: 20040211
  Receipt Date: 20030919
  Transmission Date: 20041129
  Serious: Yes (Hospitalization, Disabling)
  Sender: FDA-Public Use
  Company Number: WAES 0309USA02379

PATIENT
  Age: 65 Year
  Sex: Male
  Weight: 75 kg

DRUGS (3)
  1. ASPIRIN [Concomitant]
  2. VIOXX [Suspect]
     Indication: OSTEOARTHRITIS
     Route: 048
     Dates: start: 20011001
  3. VIOXX [Suspect]
     Indication: BACK PAIN
     Route: 048
     Dates: start: 20011001

REACTIONS (10)
  - BLINDNESS UNILATERAL [None]
  - CAROTID ARTERY STENOSIS [None]
  - CEREBRAL HAEMORRHAGE [None]
  - CEREBRAL INFARCTION [None]
  - CEREBROVASCULAR ACCIDENT [None]
  - DYSARTHRIA [None]
  - DYSPEPSIA [None]
  - GASTROOESOPHAGEAL REFLUX DISEASE [None]
  - HEMIANOPIA [None]
  - SKIN LACERATION [None]
